FAERS Safety Report 4786744-0 (Version None)
Quarter: 2005Q4

REPORT INFORMATION
  Report Type: 
  Country: None (occurrence: None)
  Receive Date: 20051003
  Receipt Date: 20051003
  Transmission Date: 20060501
  Serious: No
  Sender: FDA-Public Use
  Company Number: None

PATIENT
  Age: 24 Year
  Sex: Female
  Weight: 54.4316 kg

DRUGS (2)
  1. PAXIL [Suspect]
     Indication: ANXIETY
     Dosage: 20MG DAILY PO
     Route: 048
  2. PAXIL [Suspect]
     Indication: POST-TRAUMATIC STRESS DISORDER
     Dosage: 20MG DAILY PO
     Route: 048

REACTIONS (4)
  - ANOREXIA [None]
  - INSOMNIA [None]
  - PYREXIA [None]
  - THINKING ABNORMAL [None]
